FAERS Safety Report 13299683 (Version 1)
Quarter: 2017Q1

REPORT INFORMATION
  Report Type: Spontaneous
  Country: US (occurrence: US)
  Receive Date: 20170306
  Receipt Date: 20170306
  Transmission Date: 20170428
  Serious: Yes (Hospitalization, Other)
  Sender: FDA-Public Use
  Company Number: US-SHIRE-US201704392

PATIENT
  Age: 51 Year
  Sex: Female

DRUGS (13)
  1. WARFARIN [Suspect]
     Active Substance: WARFARIN
     Dosage: 5 MG, 1X/DAY:QD
     Route: 065
  2. WARFARIN [Suspect]
     Active Substance: WARFARIN
     Indication: DEEP VEIN THROMBOSIS
     Dosage: 5 MG, 1X/DAY:QD
     Route: 065
  3. WARFARIN [Suspect]
     Active Substance: WARFARIN
     Dosage: 10 MG, 1X/DAY:QD
     Route: 065
  4. WARFARIN [Suspect]
     Active Substance: WARFARIN
     Dosage: 6 MG, 1X/DAY:QD
     Route: 065
  5. WARFARIN [Suspect]
     Active Substance: WARFARIN
     Dosage: 7.5 MG, 1X/DAY:QD
     Route: 065
  6. 429 (MESALAZINE) [Suspect]
     Active Substance: MESALAMINE
     Indication: LARGE INTESTINAL ULCER
     Dosage: 800 MG, 3X/DAY:TID
     Route: 048
  7. ISRADIPINE. [Concomitant]
     Active Substance: ISRADIPINE
     Indication: HYPERTENSION
     Dosage: 10 MG, 1X/DAY:QD
     Route: 065
  8. FAMOTIDINE. [Concomitant]
     Active Substance: FAMOTIDINE
     Indication: GASTROOESOPHAGEAL REFLUX DISEASE
     Dosage: 20 MG, 1X/DAY:QD
     Route: 065
  9. WARFARIN [Suspect]
     Active Substance: WARFARIN
     Dosage: 8 MG, 1X/DAY:QD
     Route: 065
  10. WARFARIN [Suspect]
     Active Substance: WARFARIN
     Dosage: 10 MG, 1X/DAY:QD
     Route: 065
  11. LORAZEPAM. [Concomitant]
     Active Substance: LORAZEPAM
     Indication: ANXIETY
     Dosage: 2 MG, 3X/DAY:TID
     Route: 065
  12. LISINOPRIL. [Concomitant]
     Active Substance: LISINOPRIL
     Indication: HYPERTENSION
     Dosage: 2.5 MG, 1X/DAY:QD
     Route: 065
  13. WARFARIN [Suspect]
     Active Substance: WARFARIN
     Dosage: 8 MG, 1X/DAY:QD
     Route: 065

REACTIONS (4)
  - Deep vein thrombosis [Unknown]
  - Drug interaction [Recovered/Resolved]
  - International normalised ratio decreased [Recovered/Resolved]
  - Product use issue [Recovered/Resolved]
